FAERS Safety Report 19267276 (Version 1)
Quarter: 2021Q2

REPORT INFORMATION
  Report Type: Report from Study
  Country: None (occurrence: US)
  Receive Date: 20210518
  Receipt Date: 20210518
  Transmission Date: 20210717
  Serious: Yes (Other)
  Sender: FDA-Public Use
  Company Number: US-ABBVIE-21K-163-3852045-00

PATIENT
  Sex: Female

DRUGS (1)
  1. HUMIRA [Suspect]
     Active Substance: ADALIMUMAB
     Indication: RHEUMATOID ARTHRITIS
     Route: 058
     Dates: start: 20201223, end: 20210303

REACTIONS (11)
  - Pain in jaw [Unknown]
  - Headache [Unknown]
  - Rheumatoid arthritis [Not Recovered/Not Resolved]
  - Lymphadenopathy [Unknown]
  - Ear pain [Unknown]
  - Trigeminal neuralgia [Unknown]
  - Mastication disorder [Unknown]
  - Visual impairment [Unknown]
  - Eye infection [Unknown]
  - Giant cell arteritis [Unknown]
  - Swelling face [Unknown]
